FAERS Safety Report 10094548 (Version 9)
Quarter: 2016Q1

REPORT INFORMATION
  Report Type: Spontaneous
  Country: US (occurrence: US)
  Receive Date: 20140422
  Receipt Date: 20160113
  Transmission Date: 20160525
  Serious: Yes (Hospitalization, Disabling, Other)
  Sender: FDA-Public Use
  Company Number: US-009507513-1404USA006202

PATIENT
  Sex: Female

DRUGS (7)
  1. VITAMINS (UNSPECIFIED) [Concomitant]
     Active Substance: VITAMINS
     Indication: PRODUCT USED FOR UNKNOWN INDICATION
     Dosage: UNK, QD
     Route: 065
     Dates: start: 1985
  2. ALENDRONATE SODIUM. [Suspect]
     Active Substance: ALENDRONATE SODIUM
     Dosage: 70 MG, QW
     Route: 048
     Dates: start: 20100728
  3. CALCIUM (UNSPECIFIED) [Concomitant]
     Active Substance: CALCIUM
     Indication: PRODUCT USED FOR UNKNOWN INDICATION
     Dosage: 630 MG, BID
     Route: 065
     Dates: start: 1985
  4. ALENDRONATE SODIUM. [Suspect]
     Active Substance: ALENDRONATE SODIUM
     Indication: OSTEOPOROSIS
     Dosage: 70 MG, QW
     Route: 048
     Dates: start: 20100218, end: 20120612
  5. ALENDRONATE SODIUM. [Suspect]
     Active Substance: ALENDRONATE SODIUM
     Indication: OSTEOPOROSIS
     Dosage: 70 MG, UNK
     Route: 048
     Dates: start: 20081201, end: 20091130
  6. VITAMIN D [Concomitant]
     Active Substance: CHOLECALCIFEROL
     Indication: PRODUCT USED FOR UNKNOWN INDICATION
     Dosage: 1500 IU, QD
     Route: 065
     Dates: start: 1985
  7. FOSAMAX [Suspect]
     Active Substance: ALENDRONATE SODIUM
     Indication: OSTEOPOROSIS
     Dosage: 70 MG, QW
     Route: 048
     Dates: start: 200201, end: 200807

REACTIONS (20)
  - Fall [Unknown]
  - Hypertension [Unknown]
  - Bone metabolism disorder [Unknown]
  - Cardiac pacemaker insertion [Unknown]
  - Deep vein thrombosis [Unknown]
  - Tenderness [Recovering/Resolving]
  - Arthralgia [Recovering/Resolving]
  - Knee arthroplasty [Unknown]
  - Femur fracture [Recovered/Resolved]
  - Incisional drainage [Recovering/Resolving]
  - Arthralgia [Not Recovered/Not Resolved]
  - Depression [Not Recovered/Not Resolved]
  - Oral surgery [Unknown]
  - Sleep apnoea syndrome [Unknown]
  - Limb discomfort [Unknown]
  - Tooth extraction [Unknown]
  - Anticoagulation drug level below therapeutic [Unknown]
  - Femur fracture [Recovering/Resolving]
  - Arthritis [Unknown]
  - Oedema peripheral [Recovering/Resolving]

NARRATIVE: CASE EVENT DATE: 2004
